FAERS Safety Report 7473148-5 (Version None)
Quarter: 2011Q2

REPORT INFORMATION
  Report Type: 
  Country: None (occurrence: None)
  Receive Date: 20110511
  Receipt Date: 20110506
  Transmission Date: 20111010
  Serious: Yes (Death)
  Sender: FDA-Public Use
  Company Number: CA-ROCHE-775898

PATIENT
  Age: 63 Year
  Sex: Female

DRUGS (7)
  1. LOVENOX [Suspect]
     Route: 058
  2. STEMETIL [Concomitant]
     Dosage: ROUTE: ORAL AND INTRAVENOUS
     Route: 050
  3. TORISEL [Suspect]
     Dosage: DURATION:9 DAYS. FORM: LIQUID
     Route: 042
  4. ZOFRAN [Concomitant]
     Dosage: ROUTE: ORAL AND INTRAVENOUS
     Route: 050
  5. PANTOLOC [Concomitant]
     Dosage: FORM: TABLET (ENTERIC COATED)
  6. IMOVANE [Concomitant]
  7. NAPROSYN [Suspect]
     Dosage: DURATION: 1 DAY
     Route: 048

REACTIONS (9)
  - HYPERTENSION [None]
  - PLATELET DISORDER [None]
  - CEREBRAL HAEMATOMA [None]
  - NAUSEA [None]
  - HYDROCEPHALUS [None]
  - LOSS OF CONSCIOUSNESS [None]
  - VOMITING [None]
  - HEADACHE [None]
  - INTRAVENTRICULAR HAEMORRHAGE [None]
